FAERS Safety Report 6720504-6 (Version None)
Quarter: 2010Q2

REPORT INFORMATION
  Report Type: 
  Country: None (occurrence: None)
  Receive Date: 20100511
  Receipt Date: 20100506
  Transmission Date: 20101027
  Serious: Yes (Disabling, Other)
  Sender: FDA-Public Use
  Company Number: US-MERCK-0911USA00164

PATIENT
  Age: 59 Year
  Sex: Female
  Weight: 94 kg

DRUGS (10)
  1. FOSAMAX [Suspect]
     Indication: OSTEOPENIA
     Route: 048
     Dates: start: 19990422, end: 20010321
  2. FOSAMAX [Suspect]
     Route: 048
     Dates: start: 20010322, end: 20020101
  3. FOSAMAX [Suspect]
     Route: 048
     Dates: start: 20081001, end: 20081001
  4. FOSAMAX [Suspect]
     Route: 048
     Dates: start: 20020501, end: 20071022
  5. FOSAMAX [Suspect]
     Indication: OSTEOPOROSIS
     Route: 048
     Dates: start: 19990422, end: 20010321
  6. FOSAMAX [Suspect]
     Route: 048
     Dates: start: 20010322, end: 20020101
  7. FOSAMAX [Suspect]
     Route: 048
     Dates: start: 20081001, end: 20081001
  8. FOSAMAX [Suspect]
     Route: 048
     Dates: start: 20020501, end: 20071022
  9. FOSAMAX PLUS D [Suspect]
     Indication: OSTEOPENIA
     Route: 048
     Dates: start: 20070101
  10. FOSAMAX PLUS D [Suspect]
     Indication: OSTEOPOROSIS
     Route: 048
     Dates: start: 20070101

REACTIONS (88)
  - ADVERSE EVENT [None]
  - AMNESIA [None]
  - ANXIETY [None]
  - ARTHROPATHY [None]
  - ASTHENIA [None]
  - ASTHMA [None]
  - ATROPHIC VULVOVAGINITIS [None]
  - AUTOIMMUNE HEPATITIS [None]
  - BACK PAIN [None]
  - BLOOD PARATHYROID HORMONE INCREASED [None]
  - BODY HEIGHT DECREASED [None]
  - BONE DISORDER [None]
  - BONE LESION [None]
  - BREAST CANCER [None]
  - BREAST CANCER FEMALE [None]
  - BREAST CANCER RECURRENT [None]
  - BREAST CELLULITIS [None]
  - BREAST PAIN [None]
  - BREAST TENDERNESS [None]
  - CARPAL TUNNEL SYNDROME [None]
  - CATARACT [None]
  - CEREBROSCLEROSIS [None]
  - CERVICOBRACHIAL SYNDROME [None]
  - CONTUSION [None]
  - COUGH [None]
  - DEPRESSION [None]
  - DERMATITIS CONTACT [None]
  - DIPLOPIA [None]
  - DRUG HYPERSENSITIVITY [None]
  - DYSPHAGIA [None]
  - EMOTIONAL DISORDER [None]
  - ENDOMETRIAL DISORDER [None]
  - ENDOMETRIAL HYPERTROPHY [None]
  - ERYTHEMA [None]
  - EXOSTOSIS [None]
  - FATIGUE [None]
  - FEAR [None]
  - FEMUR FRACTURE [None]
  - GAIT DISTURBANCE [None]
  - GOITRE [None]
  - HEADACHE [None]
  - HOT FLUSH [None]
  - HYPERKERATOSIS [None]
  - HYPERTENSION [None]
  - HYPERVITAMINOSIS [None]
  - HYPOACUSIS [None]
  - HYPOAESTHESIA [None]
  - IMPAIRED FASTING GLUCOSE [None]
  - INCREASED TENDENCY TO BRUISE [None]
  - INTERVERTEBRAL DISC PROTRUSION [None]
  - JAW DISORDER [None]
  - LATEX ALLERGY [None]
  - LOW TURNOVER OSTEOPATHY [None]
  - LOWER LIMB FRACTURE [None]
  - LUMBAR RADICULOPATHY [None]
  - LUNG NEOPLASM [None]
  - MENTAL DISORDER [None]
  - METASTASES TO LYMPH NODES [None]
  - MULTIPLE INJURIES [None]
  - MUSCLE SPASMS [None]
  - NECK PAIN [None]
  - NERVOUSNESS [None]
  - NOCTURIA [None]
  - NUCLEAR MAGNETIC RESONANCE IMAGING BRAIN ABNORMAL [None]
  - OSTEOMYELITIS [None]
  - OSTEOPENIA [None]
  - PAIN [None]
  - PAIN IN EXTREMITY [None]
  - PARAESTHESIA [None]
  - POLLAKIURIA [None]
  - RADICULOPATHY [None]
  - RIB FRACTURE [None]
  - SPINAL OSTEOARTHRITIS [None]
  - STRESS [None]
  - STRESS FRACTURE [None]
  - STRESS URINARY INCONTINENCE [None]
  - TEMPERATURE INTOLERANCE [None]
  - THYROID NEOPLASM [None]
  - TINNITUS [None]
  - TOOTH LOSS [None]
  - TRANSAMINASES INCREASED [None]
  - TUMOUR INVASION [None]
  - URINARY INCONTINENCE [None]
  - URINE CALCIUM INCREASED [None]
  - URINE CALCIUM/CREATININE RATIO INCREASED [None]
  - UTERINE DISORDER [None]
  - VISUAL IMPAIRMENT [None]
  - VITAMIN D DEFICIENCY [None]
